FAERS Safety Report 9967073 (Version 1)
Quarter: 2014Q1

REPORT INFORMATION
  Report Type: Other
  Country: US (occurrence: US)
  Receive Date: 20140305
  Receipt Date: 20140305
  Transmission Date: 20141002
  Serious: Yes (Death)
  Sender: FDA-Public Use
  Company Number: US-FRI-1000054867

PATIENT
  Age: 35 Year
  Sex: Female

DRUGS (8)
  1. CITALOPRAM [Suspect]
  2. TRAZODONE [Suspect]
  3. CLONAZEPAM [Suspect]
  4. HYDROXYZINE [Suspect]
  5. FLUOXETINE [Suspect]
  6. IBUPROFEN [Suspect]
  7. VALACYCLOVIR [Suspect]
  8. ETHANOL [Suspect]

REACTIONS (1)
  - Completed suicide [Fatal]
